FAERS Safety Report 20636638 (Version 1)
Quarter: 2022Q1

REPORT INFORMATION
  Report Type: Spontaneous
  Country: US (occurrence: US)
  Receive Date: 20220325
  Receipt Date: 20220325
  Transmission Date: 20220423
  Serious: No
  Sender: FDA-Public Use
  Company Number: US-009507513-2203USA005646

PATIENT
  Age: 51 Year
  Sex: Male

DRUGS (10)
  1. NOXAFIL [Interacting]
     Active Substance: POSACONAZOLE
     Indication: Infection
     Dosage: 300 MILLIGRAM, DAILY
     Route: 048
  2. NOXAFIL [Interacting]
     Active Substance: POSACONAZOLE
     Dosage: 500 MILLIGRAM, DAILY
     Route: 048
  3. TACROLIMUS [Interacting]
     Active Substance: TACROLIMUS
     Indication: Infection
     Dosage: 1.5 MILLIGRAM, TWICE DAILY
  4. VANCOMYCIN [Concomitant]
     Active Substance: VANCOMYCIN
     Dosage: DOSED PER TROUGH CONCENTRATIONS
  5. PIPERACILLIN AND TAZOBACTAM [Concomitant]
     Active Substance: PIPERACILLIN SODIUM\TAZOBACTAM SODIUM
     Dosage: 4.5 GRAM, EVERY 8 HOURS
     Route: 042
  6. VORICONAZOLE [Concomitant]
     Active Substance: VORICONAZOLE
     Dosage: 200 MILLIGRAM, TWICE DAILY
     Route: 048
  7. AMPHOTERICIN B [Concomitant]
     Active Substance: AMPHOTERICIN B
     Dosage: 300 MILLIGRAM, DAILY
  8. ANIDULAFUNGIN [Concomitant]
     Active Substance: ANIDULAFUNGIN
     Dosage: LOADING DOSE OF 150 MILLIGRAM
  9. ANIDULAFUNGIN [Concomitant]
     Active Substance: ANIDULAFUNGIN
     Dosage: 100 MILLIGRAM, DAILY
  10. ANIDULAFUNGIN [Concomitant]
     Active Substance: ANIDULAFUNGIN
     Dosage: 150 MILLIGRAM, DAILY
     Route: 042

REACTIONS (2)
  - Drug interaction [Unknown]
  - Product use in unapproved indication [Unknown]
